FAERS Safety Report 6864602-5 (Version None)
Quarter: 2010Q3

REPORT INFORMATION
  Report Type: 
  Country: None (occurrence: None)
  Receive Date: 20100721
  Receipt Date: 20080330
  Transmission Date: 20110219
  Serious: No
  Sender: FDA-Public Use
  Company Number: US-PFIZER INC-2008028684

PATIENT
  Sex: Female
  Weight: 90.7 kg

DRUGS (6)
  1. CHANTIX [Suspect]
     Indication: SMOKING CESSATION THERAPY
     Dates: start: 20080101
  2. ESTRADIOL [Concomitant]
  3. ALLEGRA [Concomitant]
  4. CELEXA [Concomitant]
  5. BENICAR [Concomitant]
     Indication: HYPERTENSION
  6. EFFEXOR [Concomitant]

REACTIONS (4)
  - ABNORMAL DREAMS [None]
  - ANGER [None]
  - DRUG DOSE OMISSION [None]
  - IRRITABILITY [None]
